FAERS Safety Report 11391514 (Version 1)
Quarter: 2015Q3

REPORT INFORMATION
  Report Type: Spontaneous
  Country: TR (occurrence: TR)
  Receive Date: 20150818
  Receipt Date: 20150818
  Transmission Date: 20151125
  Serious: Yes (Hospitalization)
  Sender: FDA-Public Use
  Company Number: TR-SUN PHARMACEUTICAL INDUSTRIES LTD-2015RR-101699

PATIENT

DRUGS (9)
  1. QUETIAPINE [Suspect]
     Active Substance: QUETIAPINE
     Indication: BIPOLAR DISORDER
     Dosage: AUGMENTATION WITH A DOSAGE ADJUSTMENT OF 100-800 MG/DAY
     Route: 065
     Dates: start: 2001, end: 2004
  2. OLANZAPINE. [Suspect]
     Active Substance: OLANZAPINE
     Dosage: 20 MG, DAILY
     Route: 065
     Dates: start: 201209, end: 201301
  3. LITHIUM. [Suspect]
     Active Substance: LITHIUM
     Indication: BIPOLAR DISORDER
     Dosage: 1200 MG, DAILY
     Route: 065
     Dates: start: 201209
  4. QUETIAPINE [Suspect]
     Active Substance: QUETIAPINE
     Dosage: 600 MG, DAILY
     Route: 065
     Dates: start: 2011, end: 201203
  5. OLANZAPINE. [Suspect]
     Active Substance: OLANZAPINE
     Indication: BIPOLAR DISORDER
     Dosage: 20 MG, DAILY
     Route: 065
     Dates: start: 2004
  6. LITHIUM. [Suspect]
     Active Substance: LITHIUM
     Indication: BIPOLAR DISORDER
     Dosage: 900 MG, DAILY
     Route: 065
     Dates: start: 2001, end: 2004
  7. QUETIAPINE [Suspect]
     Active Substance: QUETIAPINE
     Dosage: 600 MG, DAILY, FOR 4 MONTHS
     Route: 065
     Dates: start: 2009
  8. QUETIAPINE [Suspect]
     Active Substance: QUETIAPINE
     Dosage: 200 MG, DAILY
     Route: 065
     Dates: start: 201209, end: 201301
  9. LITHIUM. [Suspect]
     Active Substance: LITHIUM
     Dosage: 1200 MG, DAILY
     Route: 065
     Dates: start: 2009, end: 201203

REACTIONS (3)
  - Meige^s syndrome [Recovered/Resolved]
  - Oromandibular dystonia [Recovered/Resolved]
  - Blepharospasm [Recovered/Resolved]
